FAERS Safety Report 17457727 (Version 1)
Quarter: 2020Q1

REPORT INFORMATION
  Report Type: Report from Study
  Country: EG (occurrence: EG)
  Receive Date: 20200225
  Receipt Date: 20200225
  Transmission Date: 20200409
  Serious: Yes (Other)
  Sender: FDA-Public Use
  Company Number: NVSC2020EG049141

PATIENT
  Age: 59 Year
  Sex: Female

DRUGS (3)
  1. NATRILIX [Concomitant]
     Active Substance: INDAPAMIDE
     Indication: PRODUCT USED FOR UNKNOWN INDICATION
     Dosage: UNK UNK, QD
     Route: 065
  2. AFINITOR [Suspect]
     Active Substance: EVEROLIMUS
     Indication: BREAST CANCER
     Dosage: 1 DF, BID
     Route: 048
     Dates: start: 20200218
  3. FEMARA [Suspect]
     Active Substance: LETROZOLE
     Indication: BREAST CANCER
     Dosage: UNK UNK, QD
     Route: 048
     Dates: start: 2017, end: 2019

REACTIONS (1)
  - Hepatic lesion [Not Recovered/Not Resolved]

NARRATIVE: CASE EVENT DATE: 20190925
